FAERS Safety Report 6477891-6 (Version None)
Quarter: 2009Q4

REPORT INFORMATION
  Report Type: 
  Country: None (occurrence: None)
  Receive Date: 20091207
  Receipt Date: 20091126
  Transmission Date: 20100525
  Serious: Yes (Other)
  Sender: FDA-Public Use
  Company Number: ES-JNJFOC-20091201405

PATIENT
  Age: 59 Year
  Sex: Female

DRUGS (1)
  1. REMICADE [Suspect]
     Indication: RHEUMATOID ARTHRITIS
     Route: 042
     Dates: start: 20010704, end: 20090101

REACTIONS (4)
  - BACTERIAL PYELONEPHRITIS [None]
  - CELLULITIS [None]
  - CEREBRAL HAEMORRHAGE [None]
  - PARTIAL SEIZURES [None]
